FAERS Safety Report 5733536-1 (Version None)
Quarter: 2008Q2

REPORT INFORMATION
  Report Type: 
  Country: None (occurrence: None)
  Receive Date: 20080509
  Receipt Date: 20080430
  Transmission Date: 20081010
  Serious: Yes (Hospitalization)
  Sender: FDA-Public Use
  Company Number: US-AVENTIS-200814032GDDC

PATIENT
  Age: 47 Year
  Sex: Female
  Weight: 65 kg

DRUGS (3)
  1. DOCETAXEL [Suspect]
     Indication: BREAST CANCER
     Route: 042
     Dates: start: 20080306, end: 20080326
  2. OTHER ANTINEOPLASTIC AGENTS [Suspect]
     Indication: BREAST CANCER
     Route: 048
     Dates: start: 20080307, end: 20080320
  3. OTHER ANTINEOPLASTIC AGENTS [Suspect]
     Route: 048
     Dates: start: 20080327, end: 20080410

REACTIONS (1)
  - RESPIRATORY FAILURE [None]
